FAERS Safety Report 5740201-3 (Version None)
Quarter: 2008Q2

REPORT INFORMATION
  Report Type: 
  Country: None (occurrence: None)
  Receive Date: 20080516
  Receipt Date: 20080505
  Transmission Date: 20081010
  Serious: Yes (Other)
  Sender: FDA-Public Use
  Company Number: US-ROCHE-562584

PATIENT
  Age: 49 Year
  Sex: Female

DRUGS (10)
  1. PEGASYS [Suspect]
     Indication: HEPATITIS C
     Route: 065
     Dates: start: 20060401, end: 20070201
  2. RIBAVIRIN [Suspect]
     Indication: HEPATITIS C
     Route: 065
     Dates: start: 20060401, end: 20070201
  3. LEVOTHYROXINE SODIUM [Concomitant]
     Indication: THYROID DISORDER
     Dosage: DRUG NAME LEVOTHYROXIN
  4. NEXIUM [Concomitant]
  5. HYDROCHLOROTHIAZIDE [Concomitant]
     Dosage: DRUG NAME TRIM-HCTZ
  6. DICYCLOMINE [Concomitant]
  7. LAMICTAL [Concomitant]
  8. ASPIRIN [Concomitant]
  9. 1 CONCOMITANT DRUG [Concomitant]
     Dosage: DRUG HERBS
  10. MULTI-VITAMIN [Concomitant]

REACTIONS (4)
  - AMNESIA [None]
  - HEADACHE [None]
  - MENINGIOMA [None]
  - SKIN DISORDER [None]
